FAERS Safety Report 10098355 (Version 1)
Quarter: 2014Q2

REPORT INFORMATION
  Report Type: Spontaneous
  Country: GB (occurrence: None)
  Receive Date: 20140421
  Receipt Date: 20140421
  Transmission Date: 20141212
  Serious: Yes (Death)
  Sender: FDA-Public Use
  Company Number: 2295922

PATIENT
  Age: 50 Year
  Sex: Male
  Weight: 110 kg

DRUGS (4)
  1. CALCIUM FOLINATE [Suspect]
     Indication: COLON CANCER METASTATIC
     Dosage: 1 CYCLICAL
     Route: 042
     Dates: start: 20130812, end: 20130812
  2. IRINOTECAN HYDROCHLORIDE [Suspect]
     Indication: COLON CANCER METASTATIC
     Route: 042
     Dates: start: 20130812, end: 20130812
  3. FLUOROURACIL [Suspect]
     Indication: COLON CANCER METASTATIC
     Route: 042
     Dates: start: 20130812, end: 20130822
  4. AFLIBERCEPT [Suspect]
     Indication: COLON CANCER METASTATIC
     Route: 042
     Dates: start: 20130812, end: 20130812

REACTIONS (4)
  - Neoplasm progression [None]
  - Abdominal pain [None]
  - Stoma site pain [None]
  - Refusal of treatment by patient [None]
